FAERS Safety Report 11333934 (Version 5)
Quarter: 2016Q4

REPORT INFORMATION
  Report Type: Spontaneous
  Country: US (occurrence: US)
  Receive Date: 20150803
  Receipt Date: 20161227
  Transmission Date: 20170206
  Serious: No
  Sender: FDA-Public Use
  Company Number: US-PFIZER INC-2015256390

PATIENT
  Age: 72 Year
  Sex: Female
  Weight: 64 kg

DRUGS (4)
  1. XELJANZ [Suspect]
     Active Substance: TOFACITINIB CITRATE
     Indication: RHEUMATOID ARTHRITIS
     Dosage: 5 MG, 2X/DAY
     Route: 048
     Dates: start: 2013
  2. HYDROCHLOROTHIAZIDE/LISINOPRIL [Concomitant]
     Indication: HYPERTENSION
     Dosage: [LISINOPRIL 20 MG]/[HCTZ 25 MG]
     Route: 048
  3. TOPROL XL [Concomitant]
     Active Substance: METOPROLOL SUCCINATE
     Dosage: 25 MG (1/2 OF 50 MG TABLET), DAILY
     Route: 048
  4. METFORMIN [Concomitant]
     Active Substance: METFORMIN HYDROCHLORIDE
     Indication: TYPE 2 DIABETES MELLITUS
     Dosage: 500 MG, 1X/DAY
     Route: 048

REACTIONS (9)
  - Tongue dry [Not Recovered/Not Resolved]
  - Infection [Unknown]
  - Bacterial infection [Not Recovered/Not Resolved]
  - Drug ineffective [Unknown]
  - Aptyalism [Not Recovered/Not Resolved]
  - Condition aggravated [Unknown]
  - Eczema [Not Recovered/Not Resolved]
  - Cystitis [Unknown]
  - Herpes zoster [Unknown]
